FAERS Safety Report 5185338-5 (Version None)
Quarter: 2006Q4

REPORT INFORMATION
  Report Type: 
  Country: None (occurrence: None)
  Receive Date: 20061220
  Receipt Date: 20050105
  Transmission Date: 20070319
  Serious: Yes (Other)
  Sender: FDA-Public Use
  Company Number: PHBS2005CA00561

PATIENT
  Age: 55 Year
  Sex: Female

DRUGS (5)
  1. HYDROCHLOROTHIAZIDE [Concomitant]
  2. DRUG THERAPY NOS [Concomitant]
     Dosage: THYROID MEDICATION
  3. COMBIPATCH [Suspect]
     Indication: POSTMENOPAUSE
     Dosage: 50 ESTR -140 NORE UG/DAY
     Route: 062
     Dates: start: 20041001, end: 20041201
  4. COMBIPATCH [Suspect]
     Dates: start: 20041201
  5. COMBIPATCH [Suspect]
     Dosage: 140/50 UG
     Route: 062
     Dates: start: 20060201

REACTIONS (9)
  - ABDOMINAL PAIN [None]
  - ASTHENIA [None]
  - CONFUSIONAL STATE [None]
  - DIZZINESS [None]
  - FATIGUE [None]
  - HEADACHE [None]
  - NAUSEA [None]
  - POSTMENOPAUSAL HAEMORRHAGE [None]
  - VAGINAL HAEMORRHAGE [None]
